FAERS Safety Report 11511248 (Version 3)
Quarter: 2015Q4

REPORT INFORMATION
  Report Type: Spontaneous
  Country: US (occurrence: US)
  Receive Date: 20150915
  Receipt Date: 20151023
  Transmission Date: 20160304
  Serious: Yes (Hospitalization, Other)
  Sender: FDA-Public Use
  Company Number: US-DSJP-DSU-2015-120673

PATIENT

DRUGS (6)
  1. BENICAR HCT [Suspect]
     Active Substance: HYDROCHLOROTHIAZIDE\OLMESARTAN MEDOXOMIL
     Indication: HYPERTENSION
     Dosage: UNK
     Dates: start: 200604
  2. BENICAR HCT [Suspect]
     Active Substance: HYDROCHLOROTHIAZIDE\OLMESARTAN MEDOXOMIL
     Dosage: 40-12.5 MG 1 TAB, QD
     Dates: start: 20110825, end: 20140929
  3. BENICAR [Suspect]
     Active Substance: OLMESARTAN MEDOXOMIL
     Indication: HYPERTENSION
     Dosage: 40-125MG
     Dates: start: 2006, end: 2014
  4. BENICAR HCT [Suspect]
     Active Substance: HYDROCHLOROTHIAZIDE\OLMESARTAN MEDOXOMIL
     Dosage: 20-12.5 MG
     Dates: start: 20101118, end: 20110825
  5. BENICAR HCT [Suspect]
     Active Substance: HYDROCHLOROTHIAZIDE\OLMESARTAN MEDOXOMIL
     Dosage: 20-12.5 MG
     Dates: start: 20060303, end: 20101118
  6. BENICAR HCT [Suspect]
     Active Substance: HYDROCHLOROTHIAZIDE\OLMESARTAN MEDOXOMIL
     Dosage: 40/ 12.5 MG
     Dates: start: 2006, end: 2014

REACTIONS (26)
  - Clostridium difficile colitis [Unknown]
  - Malabsorption [Unknown]
  - Lethargy [Unknown]
  - Diverticulitis [Unknown]
  - Haemorrhoids [Unknown]
  - Gastritis [Unknown]
  - Acute kidney injury [Recovered/Resolved]
  - Abdominal pain lower [Unknown]
  - Asthenia [Unknown]
  - Metabolic acidosis [Unknown]
  - Diverticulum [Unknown]
  - Gastroenteritis [Unknown]
  - Enterocolitis [Unknown]
  - Hypophosphataemia [Recovered/Resolved]
  - Hypocalcaemia [Unknown]
  - Cholelithiasis [Unknown]
  - Weight decreased [Unknown]
  - Dehydration [Unknown]
  - Abdominal discomfort [Unknown]
  - Hypokalaemia [Unknown]
  - Erosive duodenitis [Unknown]
  - Decreased appetite [Unknown]
  - Faecal incontinence [Unknown]
  - Magnesium metabolism disorder [Unknown]
  - Oesophagitis [Unknown]
  - Colitis ulcerative [Unknown]

NARRATIVE: CASE EVENT DATE: 20070831
